FAERS Safety Report 9954408 (Version 2)
Quarter: 2014Q1

REPORT INFORMATION
  Report Type: Report from Study
  Country: AT (occurrence: AT)
  Receive Date: 20140304
  Receipt Date: 20140304
  Transmission Date: 20141002
  Serious: Yes (Death, Hospitalization)
  Sender: FDA-Public Use
  Company Number: PHHO2010AT13819

PATIENT
  Sex: 0

DRUGS (1)
  1. EVEROLIMUS [Suspect]
     Indication: HEPATOCELLULAR CARCINOMA
     Dates: start: 20100907, end: 20100913

REACTIONS (3)
  - Sepsis [Fatal]
  - Hepatic failure [Fatal]
  - Cholecystitis [Not Recovered/Not Resolved]
